FAERS Safety Report 6164568-X (Version None)
Quarter: 2009Q2

REPORT INFORMATION
  Report Type: 
  Country: None (occurrence: None)
  Receive Date: 20090423
  Receipt Date: 20090414
  Transmission Date: 20091009
  Serious: Yes (Death)
  Sender: FDA-Public Use
  Company Number: GB-RANBAXY-2009RR-23508

PATIENT

DRUGS (4)
  1. RAMIPRIL [Suspect]
     Route: 065
  2. FUROSEMIDE [Suspect]
     Route: 065
  3. SPIRONOLACTONE [Suspect]
     Route: 065
  4. BUMETANIDE [Suspect]
     Route: 065

REACTIONS (1)
  - RENAL FAILURE [None]
